FAERS Safety Report 23014452 (Version 2)
Quarter: 2023Q4

REPORT INFORMATION
  Report Type: Spontaneous
  Country: AR (occurrence: AR)
  Receive Date: 20231002
  Receipt Date: 20231002
  Transmission Date: 20240110
  Serious: Yes (Hospitalization, Other)
  Sender: FDA-Public Use
  Company Number: AR-ASTELLAS-2023EU002935

PATIENT
  Age: 35 Year
  Sex: Female

DRUGS (3)
  1. TACROLIMUS [Suspect]
     Active Substance: TACROLIMUS
     Indication: Renal transplant
     Route: 065
  2. PREDNISONE [Concomitant]
     Active Substance: PREDNISONE
     Indication: Renal transplant
     Route: 065
  3. MYCOPHENOLATE MOFETIL [Concomitant]
     Active Substance: MYCOPHENOLATE MOFETIL
     Indication: Renal transplant
     Route: 065

REACTIONS (7)
  - Klebsiella urinary tract infection [Unknown]
  - Klebsiella infection [Unknown]
  - Klebsiella bacteraemia [Unknown]
  - Pathogen resistance [Unknown]
  - Septic shock [Unknown]
  - Protothecosis [Unknown]
  - Skin infection [Unknown]
